FAERS Safety Report 4639940-7 (Version None)
Quarter: 2005Q2

REPORT INFORMATION
  Report Type: 
  Country: None (occurrence: None)
  Receive Date: 20050414
  Receipt Date: 20050414
  Transmission Date: 20051028
  Serious: Yes (Hospitalization)
  Sender: FDA-Public Use
  Company Number: None

PATIENT
  Age: 55 Year
  Sex: Female
  Weight: 97.977 kg

DRUGS (8)
  1. FLUOROURACIL [Suspect]
     Indication: COLON CANCER
     Dosage: 844 MG IV OVER Q 2 WKS  2 HOURS
     Route: 042
     Dates: start: 20050329
  2. FLUOROURACIL [Suspect]
     Indication: COLON CANCER
     Dosage: 8064 MG IV OVER Q 2 WKS  48 HOURS
     Route: 042
     Dates: start: 20050329, end: 20050331
  3. LEUCOVORIN CALCIUM [Suspect]
     Indication: COLON CANCER
     Dosage: 844 MG IV Q 2 WKS
     Route: 042
     Dates: start: 20050329
  4. OXALIPLATIN [Suspect]
     Indication: COLON CANCER
     Dosage: 179 MG IV Q 2 WKS
     Route: 042
     Dates: start: 20050329
  5. AVASTIN [Suspect]
     Indication: COLON CANCER
     Dosage: 486 MG IV Q 2 WKS
     Route: 042
     Dates: start: 20050329
  6. FLUOROURACIL [Concomitant]
  7. LEUCOVORIN CALCIUM [Concomitant]
  8. OXALIPLATIN [Concomitant]

REACTIONS (9)
  - CENTRAL LINE INFECTION [None]
  - CHEST PAIN [None]
  - HEADACHE [None]
  - HYPERTENSION [None]
  - NAUSEA [None]
  - PARAESTHESIA [None]
  - SEPSIS [None]
  - SHOULDER PAIN [None]
  - VOMITING [None]
